FAERS Safety Report 5897181-X (Version None)
Quarter: 2008Q3

REPORT INFORMATION
  Report Type: 
  Country: None (occurrence: None)
  Receive Date: 20080923
  Receipt Date: 20080912
  Transmission Date: 20090109
  Serious: Yes (Life-Threatening, Hospitalization)
  Sender: FDA-Public Use
  Company Number: 2008AP001889

PATIENT
  Age: 46 Year
  Sex: Female

DRUGS (12)
  1. CITALOPRAM HYDROBROMIDE [Suspect]
     Indication: DEPRESSION
     Dosage: 20 MG;QD
  2. FLUCONAZOLE [Suspect]
     Dosage: 200 MG;QD
  3. CORTICOSTEROIDS [Concomitant]
  4. METHOTREXATE SODIUM [Concomitant]
  5. OLANZAPINE [Concomitant]
  6. DAPSONE [Concomitant]
  7. ACYCLOVIR [Concomitant]
  8. ESOMEPRAZOLE MAGNESIUM [Concomitant]
  9. DEXAMETHASONE [Concomitant]
  10. ZOLPIDEM [Concomitant]
  11. LOSARTAN [Concomitant]
  12. HYDROCHLOROTHIAZIDE [Concomitant]

REACTIONS (23)
  - AMNESIA [None]
  - AREFLEXIA [None]
  - BLOOD ALBUMIN DECREASED [None]
  - BLOOD POTASSIUM DECREASED [None]
  - BLOOD PRESSURE INCREASED [None]
  - CONFUSIONAL STATE [None]
  - CONVULSION [None]
  - DELIRIUM [None]
  - DEPRESSION [None]
  - DRUG INTERACTION [None]
  - ELECTROENCEPHALOGRAM ABNORMAL [None]
  - FLAT AFFECT [None]
  - GAIT DISTURBANCE [None]
  - HAEMOGLOBIN DECREASED [None]
  - MEMORY IMPAIRMENT [None]
  - MYOCLONUS [None]
  - NUCLEAR MAGNETIC RESONANCE IMAGING ABNORMAL [None]
  - PERSEVERATION [None]
  - POVERTY OF THOUGHT CONTENT [None]
  - PSYCHOMOTOR SKILLS IMPAIRED [None]
  - SEROTONIN SYNDROME [None]
  - STEM CELL TRANSPLANT [None]
  - WHITE BLOOD CELL COUNT DECREASED [None]
